FAERS Safety Report 5895562-1 (Version None)
Quarter: 2008Q3

REPORT INFORMATION
  Report Type: 
  Country: None (occurrence: None)
  Receive Date: 20080924
  Receipt Date: 20080124
  Transmission Date: 20090109
  Serious: No
  Sender: FDA-Public Use
  Company Number: US-ASTRAZENECA-2006UW07942

PATIENT
  Age: 600 Month
  Sex: Female
  Weight: 84.8 kg

DRUGS (6)
  1. SEROQUEL [Suspect]
     Indication: BIPOLAR DISORDER
     Route: 048
     Dates: start: 20030101, end: 20060101
  2. SEROQUEL [Suspect]
     Indication: INSOMNIA
     Route: 048
     Dates: start: 20030101, end: 20060101
  3. SEROQUEL [Suspect]
     Dosage: 400 MG AT NIGHT
     Route: 048
     Dates: start: 20040101
  4. SEROQUEL [Suspect]
     Dosage: 400 MG AT NIGHT
     Route: 048
     Dates: start: 20040101
  5. RISPERDAL [Concomitant]
     Dates: start: 20000101, end: 20020101
  6. DEPAKOTE [Concomitant]
     Dates: start: 20000101, end: 20060101

REACTIONS (4)
  - ARTHRALGIA [None]
  - BACK PAIN [None]
  - DIABETES MELLITUS [None]
  - ROAD TRAFFIC ACCIDENT [None]
